FAERS Safety Report 10241143 (Version 1)
Quarter: 2014Q2

REPORT INFORMATION
  Report Type: Spontaneous
  Country: US (occurrence: US)
  Receive Date: 20140617
  Receipt Date: 20140617
  Transmission Date: 20141212
  Serious: Yes (Hospitalization)
  Sender: FDA-Public Use
  Company Number: US-PFIZER INC-2014164357

PATIENT
  Sex: Male

DRUGS (3)
  1. CHANTIX [Suspect]
     Dosage: 0.5 MG, UNK
     Dates: start: 2010
  2. CHANTIX [Suspect]
     Dosage: 1 MG, UNK
  3. LASIX [Concomitant]
     Dosage: UNK

REACTIONS (4)
  - Pancreatitis [Unknown]
  - Vomiting [Unknown]
  - Depression [Unknown]
  - Nausea [Unknown]
